FAERS Safety Report 21949313 (Version 1)
Quarter: 2023Q1

REPORT INFORMATION
  Report Type: Report from Study
  Country: DE (occurrence: DE)
  Receive Date: 20230203
  Receipt Date: 20230203
  Transmission Date: 20230417
  Serious: Yes (Hospitalization, Other)
  Sender: FDA-Public Use
  Company Number: DE-SUN PHARMACEUTICAL INDUSTRIES LTD-2023R1-376918

PATIENT
  Age: 15 Year

DRUGS (2)
  1. RISPERIDONE [Suspect]
     Active Substance: RISPERIDONE
     Indication: Antipsychotic therapy
     Dosage: UNK
     Route: 065
  2. MELPERONE [Suspect]
     Active Substance: MELPERONE
     Indication: Antipsychotic therapy
     Dosage: UNK
     Route: 065

REACTIONS (8)
  - Chills [Unknown]
  - Tremor [Unknown]
  - Gait disturbance [Unknown]
  - Akinesia [Unknown]
  - Muscle spasms [Unknown]
  - Akathisia [Unknown]
  - Tongue spasm [Unknown]
  - Myoclonus [Unknown]
